FAERS Safety Report 6592867-6 (Version None)
Quarter: 2010Q1

REPORT INFORMATION
  Report Type: 
  Country: None (occurrence: None)
  Receive Date: 20100222
  Receipt Date: 20100209
  Transmission Date: 20100710
  Serious: Yes (Hospitalization, Other)
  Sender: FDA-Public Use
  Company Number: JP-BAYER-200812214BYL

PATIENT
  Age: 43 Year
  Sex: Female

DRUGS (4)
  1. BETAFERON [Suspect]
     Indication: MULTIPLE SCLEROSIS
     Route: 058
     Dates: start: 20060711, end: 20060726
  2. METHYLPREDNISOLONE [Suspect]
     Indication: MULTIPLE SCLEROSIS
     Route: 042
     Dates: start: 20060628, end: 20060630
  3. METHYLPREDNISOLONE [Suspect]
     Route: 042
     Dates: start: 20060705, end: 20060707
  4. METHYLPREDNISOLONE [Suspect]
     Route: 042
     Dates: start: 20071001, end: 20071003

REACTIONS (2)
  - AUTOIMMUNE HEPATITIS [None]
  - HEPATITIS [None]
